FAERS Safety Report 9179828 (Version 1)
Quarter: 2013Q1

REPORT INFORMATION
  Report Type: Other
  Country: GB (occurrence: GB)
  Receive Date: 20130321
  Receipt Date: 20130321
  Transmission Date: 20140127
  Serious: Yes (Other)
  Sender: FDA-Public Use
  Company Number: GB-WATSON-2013-04243

PATIENT
  Age: 77 Year
  Sex: Male
  Weight: 85 kg

DRUGS (4)
  1. DOXAZOSIN MESYLATE (UNKNOWN) [Suspect]
     Indication: HYPERTENSION
     Dosage: 2 MG, DAILY
     Route: 065
     Dates: start: 20130131, end: 20130208
  2. RAMIPRIL [Concomitant]
     Indication: HYPERTENSION
     Dosage: 10 MG, UNKNOWN, THE PATIENT IS STILL TAKING THIS DRUG, STARTED TAKING SEVERAL YEARS AGO.
     Route: 065
  3. ATENOLOL [Concomitant]
     Indication: HYPERTENSION
     Dosage: 25 MG, UNKNOWN, THE PATIENT IS STILL TAKING THIS DRUG, STARTED TAKING SEVERAL YEARS AGO.
     Route: 065
  4. OMEPRAZOLE [Concomitant]
     Indication: GASTROOESOPHAGEAL REFLUX DISEASE
     Dosage: 20 MG, UNKNOWN, THE PATIENT IS STILL TAKING THIS DRUG, STARTED TAKING SEVERAL YEARS AGO.
     Route: 065

REACTIONS (5)
  - Abdominal pain [Recovered/Resolved]
  - Headache [Recovered/Resolved]
  - Hypotension [Recovered/Resolved]
  - Lethargy [Recovered/Resolved]
  - Sleep disorder [Recovered/Resolved]
